FAERS Safety Report 11852533 (Version 2)
Quarter: 2017Q1

REPORT INFORMATION
  Report Type: Spontaneous
  Country: US (occurrence: US)
  Receive Date: 20151218
  Receipt Date: 20170215
  Transmission Date: 20170428
  Serious: Yes (Other)
  Sender: FDA-Public Use
  Company Number: US-ELI_LILLY_AND_COMPANY-US201512005800

PATIENT
  Age: 61 Year
  Sex: Female

DRUGS (9)
  1. VITAMIN D                          /00107901/ [Concomitant]
     Active Substance: ERGOCALCIFEROL
     Dosage: 1 DF, WEEKLY (1/W)
     Route: 065
  2. AMOXICILLIN. [Concomitant]
     Active Substance: AMOXICILLIN
     Dosage: 875 MG, BID
     Route: 065
  3. CYMBALTA [Suspect]
     Active Substance: DULOXETINE HYDROCHLORIDE
     Indication: PRODUCT USED FOR UNKNOWN INDICATION
     Dosage: UNK, UNKNOWN
     Route: 065
     Dates: start: 200701, end: 200712
  4. CALTRATE WITH VITAMIN D [Concomitant]
     Active Substance: CALCIUM CARBONATE\CHOLECALCIFEROL
     Dosage: 2 DF, BID
     Route: 065
  5. VERAPAMIL HYDROCHLOIRDE [Concomitant]
     Dosage: 240 MG, EACH MORNING
     Route: 065
  6. ESTRADIOL. [Concomitant]
     Active Substance: ESTRADIOL
     Dosage: 2 MG, QD
     Route: 065
  7. LORAZEPAM. [Concomitant]
     Active Substance: LORAZEPAM
     Dosage: UNK, UNKNOWN
     Route: 065
  8. CYMBALTA [Suspect]
     Active Substance: DULOXETINE HYDROCHLORIDE
     Dosage: 30 MG, QD
     Route: 065
     Dates: start: 200902, end: 200904
  9. CENTRUM SILVER                     /02363801/ [Concomitant]
     Active Substance: MINERALS\VITAMINS
     Dosage: 1 DF, QD
     Route: 065

REACTIONS (24)
  - Nightmare [Unknown]
  - Dizziness [Unknown]
  - Diarrhoea [Unknown]
  - Constipation [Unknown]
  - Sensory disturbance [Unknown]
  - Insomnia [Unknown]
  - Hyperhidrosis [Unknown]
  - Spinal osteoarthritis [Unknown]
  - Nausea [Unknown]
  - Drug withdrawal syndrome [Unknown]
  - Dysphoria [Unknown]
  - Tinnitus [Unknown]
  - Arachnoid cyst [Unknown]
  - Anxiety [Unknown]
  - Fatigue [Unknown]
  - Vomiting [Unknown]
  - Headache [Unknown]
  - Paraesthesia [Unknown]
  - Irritability [Unknown]
  - Seizure [Unknown]
  - Agitation [Unknown]
  - Suicidal ideation [Unknown]
  - Vertigo [Unknown]
  - Lethargy [Unknown]

NARRATIVE: CASE EVENT DATE: 200912
